FAERS Safety Report 5869438-X (Version None)
Quarter: 2008Q3

REPORT INFORMATION
  Report Type: 
  Country: None (occurrence: None)
  Receive Date: 20080829
  Receipt Date: 20080818
  Transmission Date: 20090109
  Serious: Yes (Death)
  Sender: FDA-Public Use
  Company Number: 08-038

PATIENT
  Age: 22 Year
  Sex: Male

DRUGS (20)
  1. CEFOXITIN [Suspect]
     Indication: ANTIBIOTIC PROPHYLAXIS
     Dosage: SEE IMAGE
  2. LEVOFLOXACIN [Concomitant]
  3. VANCOMYCIN HYDROCHLORIDE [Concomitant]
  4. METRONIDAZOLE [Concomitant]
  5. LORAZEPAM [Concomitant]
  6. MORPHINE [Concomitant]
  7. VECURONIUM BROMIDE [Concomitant]
  8. ASPIRIN [Concomitant]
  9. CALCIUM ACETATE [Concomitant]
  10. NOREPINEPHRINE [Concomitant]
  11. PHENYLEPHRINE [Concomitant]
  12. DEXAMETHASONE [Concomitant]
  13. DOCUSATE [Concomitant]
  14. EPOETIN ALFA [Concomitant]
  15. LANSOPRAZOLE [Concomitant]
  16. METOPROLOL [Concomitant]
  17. IMIPENEM [Concomitant]
  18. TIGECYCLINE [Concomitant]
  19. CEFEPIME [Concomitant]
  20. CEFAZOLIN [Concomitant]

REACTIONS (5)
  - CONDITION AGGRAVATED [None]
  - DISEASE RECURRENCE [None]
  - ESCHERICHIA INFECTION [None]
  - LEUKOPENIA [None]
  - SEPSIS [None]
